FAERS Safety Report 15552780 (Version 1)
Quarter: 2018Q4

REPORT INFORMATION
  Report Type: Spontaneous
  Country: US (occurrence: US)
  Receive Date: 20181025
  Receipt Date: 20181025
  Transmission Date: 20190205
  Serious: No
  Sender: FDA-Public Use
  Company Number: US-BAUSCH-BL-2018-017285

PATIENT
  Age: 39 Year
  Sex: Male
  Weight: 82.63 kg

DRUGS (2)
  1. LOTEMAX [Suspect]
     Active Substance: LOTEPREDNOL ETABONATE
     Indication: POSTOPERATIVE CARE
     Route: 047
     Dates: start: 20180618, end: 20180619
  2. LOTEMAX [Suspect]
     Active Substance: LOTEPREDNOL ETABONATE
     Indication: DRY EYE

REACTIONS (2)
  - Eye pain [Recovered/Resolved]
  - Eye disorder [Recovered/Resolved]

NARRATIVE: CASE EVENT DATE: 201806
